FAERS Safety Report 17167325 (Version 2)
Quarter: 2019Q4

REPORT INFORMATION
  Report Type: Report from Study
  Country: None (occurrence: SE)
  Receive Date: 20191218
  Receipt Date: 20191223
  Transmission Date: 20200122
  Serious: Yes (Death, Other)
  Sender: FDA-Public Use
  Company Number: SE-ABBVIE-19K-150-3198528-00

PATIENT
  Age: 80 Year
  Sex: Male
  Weight: 58 kg

DRUGS (7)
  1. EFFORTIL [Concomitant]
     Active Substance: ETILEFRINE HYDROCHLORIDE
     Indication: HYPOTENSION
     Dates: start: 2018
  2. BEHEPAN [Concomitant]
     Indication: PRODUCT USED FOR UNKNOWN INDICATION
  3. DUODOPA [Suspect]
     Active Substance: CARBIDOPA\LEVODOPA
     Indication: PARKINSON^S DISEASE
     Route: 050
     Dates: start: 20181112
  4. FLU VACCINE [Suspect]
     Active Substance: INFLUENZA VIRUS VACCINE
     Indication: PRODUCT USED FOR UNKNOWN INDICATION
     Route: 065
  5. LEVOCAR [Concomitant]
     Indication: PARKINSON^S DISEASE
  6. FOLSYRA [Concomitant]
     Indication: PRODUCT USED FOR UNKNOWN INDICATION
  7. FLORINEF ACETATE [Concomitant]
     Active Substance: FLUDROCORTISONE ACETATE
     Indication: HYPOTENSION
     Dates: start: 2018

REACTIONS (6)
  - Loss of consciousness [Unknown]
  - Fatigue [Unknown]
  - Cardiac disorder [Fatal]
  - Cardiac fibrillation [Unknown]
  - Feeling abnormal [Unknown]
  - Pain [Unknown]

NARRATIVE: CASE EVENT DATE: 2019
